FAERS Safety Report 19176692 (Version 1)
Quarter: 2021Q2

REPORT INFORMATION
  Report Type: Spontaneous
  Country: GB (occurrence: GB)
  Receive Date: 20210424
  Receipt Date: 20210424
  Transmission Date: 20210717
  Serious: Yes (Other)
  Sender: FDA-Public Use
  Company Number: GB-TEVA-2021-GB-1903270

PATIENT
  Age: 26 Year
  Sex: Female
  Weight: 65 kg

DRUGS (2)
  1. BETNOVATE [Suspect]
     Active Substance: BETAMETHASONE
     Indication: ECZEMA
     Dosage: THIN LAYER TWICE A DAY
     Route: 061
     Dates: start: 20180205, end: 20210106
  2. HYDROCORTISONE. [Suspect]
     Active Substance: HYDROCORTISONE
     Indication: ECZEMA
     Dosage: THIN LAYER TWICE A DAY
     Route: 061
     Dates: start: 20160206, end: 20210104

REACTIONS (6)
  - Skin burning sensation [Recovering/Resolving]
  - Medication error [Unknown]
  - Rash pruritic [Not Recovered/Not Resolved]
  - Skin swelling [Recovering/Resolving]
  - Lymphadenopathy [Recovering/Resolving]
  - Insomnia [Recovered/Resolved]

NARRATIVE: CASE EVENT DATE: 20210106
